FAERS Safety Report 18845574 (Version 1)
Quarter: 2021Q1

REPORT INFORMATION
  Report Type: Spontaneous
  Country: FR (occurrence: FR)
  Receive Date: 20210204
  Receipt Date: 20210204
  Transmission Date: 20210419
  Serious: Yes (Hospitalization)
  Sender: FDA-Public Use
  Company Number: FR-MYLANLABS-2021M1006827

PATIENT
  Age: 47 Year
  Sex: Male
  Weight: 86 kg

DRUGS (6)
  1. ANDROTARDYL [Suspect]
     Active Substance: TESTOSTERONE
     Indication: HYPOPITUITARISM
     Dosage: 250 MILLIGRAM, Q21D
     Route: 030
     Dates: start: 19980101
  2. PAROXETINE. [Suspect]
     Active Substance: PAROXETINE
     Indication: DEPRESSION
     Dosage: 30 MILLIGRAM, QD
     Route: 048
  3. BACLOFENE [Suspect]
     Active Substance: BACLOFEN
     Indication: MUSCLE SPASMS
     Dosage: 30 MILLIGRAM, QD
     Route: 048
  4. FAMPYRA [Suspect]
     Active Substance: DALFAMPRIDINE
     Indication: MULTIPLE SCLEROSIS
     Dosage: 20 MILLIGRAM, QD
     Route: 048
  5. VESICARE [Concomitant]
     Active Substance: SOLIFENACIN SUCCINATE
     Dosage: 5 MILLIGRAM, QD
     Route: 048
     Dates: start: 20201101
  6. PANTOPRAZOLE [Suspect]
     Active Substance: PANTOPRAZOLE
     Indication: PRODUCT USED FOR UNKNOWN INDICATION
     Dosage: 20 MILLIGRAM, QD
     Route: 048

REACTIONS (1)
  - Polycythaemia [Not Recovered/Not Resolved]

NARRATIVE: CASE EVENT DATE: 202005
